FAERS Safety Report 8486637-1 (Version None)
Quarter: 2012Q3

REPORT INFORMATION
  Report Type: 
  Country: None (occurrence: None)
  Receive Date: 20120703
  Receipt Date: 20120626
  Transmission Date: 20120928
  Serious: Yes (Other)
  Sender: FDA-Public Use
  Company Number: PHHY2012US055248

PATIENT

DRUGS (3)
  1. CLOMIPRAMINE HCL [Suspect]
  2. SELEGILINE [Suspect]
     Route: 062
  3. METHYLPHENIDATE [Suspect]

REACTIONS (3)
  - SYNCOPE [None]
  - DRUG INTERACTION [None]
  - DIZZINESS [None]
